FAERS Safety Report 19478265 (Version 1)
Quarter: 2021Q2

REPORT INFORMATION
  Report Type: Spontaneous
  Country: US (occurrence: US)
  Receive Date: 20210630
  Receipt Date: 20210630
  Transmission Date: 20210717
  Serious: No
  Sender: FDA-Public Use
  Company Number: US-SA-2021SA213957

PATIENT
  Sex: Female

DRUGS (7)
  1. CLARITIN [Concomitant]
     Active Substance: LORATADINE
     Dosage: 10 MG
  2. VITAMIN K [Concomitant]
     Active Substance: PHYTONADIONE
     Dosage: 600MG
  3. XYZAL [Concomitant]
     Active Substance: LEVOCETIRIZINE DIHYDROCHLORIDE
     Dosage: 5 MG
  4. VITAMIN D [COLECALCIFEROL] [Concomitant]
     Active Substance: CHOLECALCIFEROL
  5. DUPIXENT [Suspect]
     Active Substance: DUPILUMAB
     Indication: DERMATITIS ATOPIC
     Dosage: 300 MG, QOW
     Route: 058
     Dates: start: 202010
  6. CALCIUM [Concomitant]
     Active Substance: CALCIUM
     Dosage: 600 MG
  7. OFLOXACIN [OFLOXACIN HYDROCHLORIDE] [Concomitant]

REACTIONS (2)
  - Unevaluable event [Unknown]
  - Dry eye [Unknown]
